FAERS Safety Report 16388326 (Version 1)
Quarter: 2019Q2

REPORT INFORMATION
  Report Type: Spontaneous
  Country: US (occurrence: US)
  Receive Date: 20190604
  Receipt Date: 20190604
  Transmission Date: 20190711
  Serious: No
  Sender: FDA-Public Use
  Company Number: US-PFIZER INC-2019232143

PATIENT
  Age: 74 Year
  Sex: Female
  Weight: 60 kg

DRUGS (2)
  1. TOVIAZ [Suspect]
     Active Substance: FESOTERODINE FUMARATE
     Indication: URGE INCONTINENCE
     Dosage: UNK
  2. GABAPENTIN. [Concomitant]
     Active Substance: GABAPENTIN
     Dosage: 100 MG, 4X/DAY,(TAKE 100MG BY MOUTH 4(FOUR) TIMES DAILY.)
     Route: 048

REACTIONS (4)
  - Drug ineffective [Unknown]
  - Urine odour abnormal [Unknown]
  - Urinary tract infection [Unknown]
  - Urine abnormality [Unknown]

NARRATIVE: CASE EVENT DATE: 20190528
